FAERS Safety Report 23847745 (Version 2)
Quarter: 2024Q2

REPORT INFORMATION
  Report Type: Spontaneous
  Country: US (occurrence: US)
  Receive Date: 20240513
  Receipt Date: 20240520
  Transmission Date: 20240717
  Serious: Yes (Hospitalization)
  Sender: FDA-Public Use
  Company Number: US-TEVA-VS-3197567

PATIENT
  Age: 29 Year
  Sex: Female

DRUGS (2)
  1. WARFARIN [Suspect]
     Active Substance: WARFARIN
     Indication: Anticoagulation drug level below therapeutic
     Route: 065
  2. ETONOGESTREL [Suspect]
     Active Substance: ETONOGESTREL
     Indication: Heavy menstrual bleeding
     Route: 065

REACTIONS (2)
  - Drug interaction [Unknown]
  - Drug resistance [Recovered/Resolved]
